FAERS Safety Report 4270784-4 (Version None)
Quarter: 2004Q1

REPORT INFORMATION
  Report Type: 
  Country: None (occurrence: None)
  Receive Date: 20040114
  Receipt Date: 20030108
  Transmission Date: 20041129
  Serious: Yes (Congenital Anomaly)
  Sender: FDA-Public Use
  Company Number: FR-ROCHE-328939

PATIENT

DRUGS (1)
  1. ROACCUTANE [Suspect]
     Indication: DRUG USE FOR UNKNOWN INDICATION

REACTIONS (5)
  - ACCIDENTAL EXPOSURE [None]
  - CONGENITAL FOOT MALFORMATION [None]
  - KIDNEY MALFORMATION [None]
  - LIVE BIRTH [None]
  - MATERNAL DRUGS AFFECTING FOETUS [None]
